FAERS Safety Report 5613752-X (Version None)
Quarter: 2008Q1

REPORT INFORMATION
  Report Type: 
  Country: None (occurrence: None)
  Receive Date: 20080205
  Receipt Date: 20080130
  Transmission Date: 20080703
  Serious: Yes (Hospitalization)
  Sender: FDA-Public Use
  Company Number: ES-AVENTIS-200811083GDDC

PATIENT
  Age: 71 Year
  Sex: Male

DRUGS (6)
  1. TARGOCID [Suspect]
     Route: 042
     Dates: start: 20071204, end: 20071211
  2. CLEXANE [Suspect]
     Indication: PROPHYLAXIS
     Route: 058
     Dates: start: 20071123, end: 20071204
  3. FLAGYL [Suspect]
     Route: 042
     Dates: start: 20071121, end: 20071204
  4. TIENAM [Suspect]
     Route: 042
     Dates: start: 20071204, end: 20071211
  5. ENANTYUM [Suspect]
     Route: 042
     Dates: start: 20071116, end: 20071204
  6. OMEPRAZOL STADA [Concomitant]
     Route: 042
     Dates: start: 20071024

REACTIONS (2)
  - LEUKOPENIA [None]
  - THROMBOCYTOPENIA [None]
